FAERS Safety Report 18988081 (Version 1)
Quarter: 2021Q1

REPORT INFORMATION
  Report Type: Report from Study
  Country: CA (occurrence: CA)
  Receive Date: 20210309
  Receipt Date: 20210309
  Transmission Date: 20210420
  Serious: Yes (Hospitalization)
  Sender: FDA-Public Use
  Company Number: CA-JNJFOC-20210310968

PATIENT
  Age: 12 Year
  Sex: Male
  Weight: 31.2 kg

DRUGS (1)
  1. REMICADE [Suspect]
     Active Substance: INFLIXIMAB
     Indication: CROHN^S DISEASE
     Dosage: GIVEN 04 DOSES FOR REMICADE. DOSE 1 10MG/KG GIVEN 25 JAN/21 LAST DOSE 5MG/KG  GIVEN 19 FEB/21
     Route: 042
     Dates: start: 20210125, end: 20210219

REACTIONS (3)
  - Drug ineffective [Unknown]
  - Colectomy [Unknown]
  - Ileostomy [Unknown]

NARRATIVE: CASE EVENT DATE: 2021
